FAERS Safety Report 12277378 (Version 1)
Quarter: 2016Q2

REPORT INFORMATION
  Report Type: Spontaneous
  Country: US (occurrence: None)
  Receive Date: 20160415
  Receipt Date: 20160415
  Transmission Date: 20160815
  Serious: No
  Sender: FDA-Public Use
  Company Number: None

PATIENT
  Sex: Female

DRUGS (1)
  1. HUMIRA [Suspect]
     Active Substance: ADALIMUMAB
     Indication: PSORIASIS
     Dosage: 80 MG ON DAY 1, ?40MG ON DAY 8
     Route: 058
     Dates: start: 20160121

REACTIONS (2)
  - Hypercholesterolaemia [None]
  - Feeling of body temperature change [None]
